FAERS Safety Report 22122789 (Version 15)
Quarter: 2025Q4

REPORT INFORMATION
  Report Type: Report from Study
  Country: CA (occurrence: CA)
  Receive Date: 20230322
  Receipt Date: 20251008
  Transmission Date: 20260118
  Serious: Yes (Hospitalization, Other)
  Sender: BOEHRINGER INGELHEIM
  Company Number: CA-BoehringerIngelheim-2023-BI-222401

PATIENT
  Age: 59 Year
  Sex: Female
  Weight: 63.6 kg

DRUGS (3)
  1. OFEV [Suspect]
     Active Substance: NINTEDANIB
     Indication: Interstitial lung disease
     Dates: start: 20230215, end: 20230315
  2. OFEV [Suspect]
     Active Substance: NINTEDANIB
     Indication: Systemic sclerosis pulmonary
     Dates: start: 20230318
  3. OFEV [Suspect]
     Active Substance: NINTEDANIB
     Dates: start: 20230517

REACTIONS (22)
  - Dehydration [Recovering/Resolving]
  - Pneumonia [Not Recovered/Not Resolved]
  - Interstitial lung disease [Not Recovered/Not Resolved]
  - Abdominal pain [Recovering/Resolving]
  - Impaired gastric emptying [Not Recovered/Not Resolved]
  - Vomiting [Not Recovered/Not Resolved]
  - COVID-19 [Not Recovered/Not Resolved]
  - Muscle spasms [Not Recovered/Not Resolved]
  - Illness [Not Recovered/Not Resolved]
  - Cough [Not Recovered/Not Resolved]
  - Rib fracture [Not Recovered/Not Resolved]
  - Anaemia [Not Recovered/Not Resolved]
  - Nail pitting [Not Recovered/Not Resolved]
  - Dyspnoea exertional [Not Recovered/Not Resolved]
  - Red blood cell count decreased [Unknown]
  - Weight decreased [Not Recovered/Not Resolved]
  - Gait disturbance [Unknown]
  - Loss of consciousness [Unknown]
  - Dizziness [Unknown]
  - Blood pressure fluctuation [Unknown]
  - Drug intolerance [Unknown]
  - Nasopharyngitis [Unknown]

NARRATIVE: CASE EVENT DATE: 20230201
